FAERS Safety Report 6402038-1 (Version None)
Quarter: 2009Q4

REPORT INFORMATION
  Report Type: 
  Country: None (occurrence: None)
  Receive Date: 20091015
  Receipt Date: 20091006
  Transmission Date: 20100525
  Serious: Yes (Disabling, Other)
  Sender: FDA-Public Use
  Company Number: GB-PFIZER INC-2009278769

PATIENT
  Age: 39 Year

DRUGS (1)
  1. CHAMPIX [Suspect]
     Indication: EX-TOBACCO USER
     Dosage: 1 MG, UNK
     Route: 048
     Dates: start: 20090116, end: 20090201

REACTIONS (3)
  - AGGRESSION [None]
  - ANGER [None]
  - DEPRESSION [None]
